FAERS Safety Report 9637690 (Version 1)
Quarter: 2013Q4

REPORT INFORMATION
  Report Type: Spontaneous
  Country: IT (occurrence: None)
  Receive Date: 20131018
  Receipt Date: 20131018
  Transmission Date: 20140711
  Serious: Yes (Other)
  Sender: FDA-Public Use
  Company Number: 2013AP008861

PATIENT
  Age: 62 Year
  Sex: Male

DRUGS (2)
  1. LEVOFLOXACIN (LEVOFLOXACIN) [Suspect]
     Indication: URINARY TRACT INFECTION
     Route: 048
     Dates: start: 20120902, end: 20120907
  2. COUMADIN /00014802/(WARFARIN SODIUM) [Concomitant]

REACTIONS (1)
  - Grand mal convulsion [None]
